FAERS Safety Report 5045137-1 (Version None)
Quarter: 2006Q3

REPORT INFORMATION
  Report Type: 
  Country: None (occurrence: None)
  Receive Date: 20060707
  Receipt Date: 20060628
  Transmission Date: 20061208
  Serious: Yes (Hospitalization)
  Sender: FDA-Public Use
  Company Number: FR-SANOFI-SYNTHELABO-A02200601690

PATIENT
  Age: 37 Year
  Sex: Female

DRUGS (2)
  1. STILNOX [Suspect]
     Indication: DRUG DEPENDENCE
     Dosage: UNK
     Route: 042
  2. SUBUTEX [Suspect]
     Dosage: UNK
     Route: 042

REACTIONS (4)
  - INCORRECT ROUTE OF DRUG ADMINISTRATION [None]
  - INTENTIONAL DRUG MISUSE [None]
  - LUNG DISORDER [None]
  - RESPIRATORY FAILURE [None]
